FAERS Safety Report 4431880-1 (Version None)
Quarter: 2004Q3

REPORT INFORMATION
  Report Type: 
  Country: None (occurrence: None)
  Receive Date: 20040819
  Receipt Date: 20040804
  Transmission Date: 20050211
  Serious: Yes (Other)
  Sender: FDA-Public Use
  Company Number: 2004052662

PATIENT
  Age: 78 Year
  Sex: Female
  Weight: 68.0396 kg

DRUGS (8)
  1. BENADRYL [Suspect]
     Indication: ANAPHYLACTIC SHOCK
     Dosage: 1 ULTRATAB EVERY 4-6 HOURS ORAL
     Route: 048
  2. LIDOCAINE HYDROCHLORIDE [Suspect]
     Dosage: ORAL
     Route: 048
  3. METHYLPREDNISOLONE [Suspect]
     Dosage: ORAL
     Route: 048
     Dates: start: 20040804
  4. LORAZEPAM [Concomitant]
  5. FLUOXETINE HCL [Concomitant]
  6. RANITIDINE HYDROCHLORIDE [Concomitant]
  7. DICYCLOMINE HCL [Concomitant]
  8. TRIMETHOBENZAMIDE HCL [Concomitant]

REACTIONS (3)
  - ANAPHYLACTIC SHOCK [None]
  - HEART RATE INCREASED [None]
  - PALPITATIONS [None]
